FAERS Safety Report 9782274 (Version 1)
Quarter: 2013Q4

REPORT INFORMATION
  Report Type: Report from Study
  Country: CA (occurrence: CA)
  Receive Date: 20131226
  Receipt Date: 20131226
  Transmission Date: 20140711
  Serious: Yes (Other)
  Sender: FDA-Public Use
  Company Number: CA-JNJFOC-20131213463

PATIENT
  Age: 50 Year
  Sex: Male
  Weight: 79 kg

DRUGS (6)
  1. REMICADE [Suspect]
     Indication: CROHN^S DISEASE
     Route: 042
     Dates: start: 200509
  2. IMURAN [Concomitant]
     Route: 065
  3. ATIVAN [Concomitant]
     Route: 065
  4. ATACAND PLUS [Concomitant]
     Route: 065
  5. ZOPICLONE [Concomitant]
     Route: 065
  6. PAROXETINE [Concomitant]
     Route: 065

REACTIONS (3)
  - Blood test abnormal [Not Recovered/Not Resolved]
  - Lethargy [Not Recovered/Not Resolved]
  - Headache [Unknown]
